FAERS Safety Report 17037832 (Version 1)
Quarter: 2019Q4

REPORT INFORMATION
  Report Type: Spontaneous
  Country: US (occurrence: US)
  Receive Date: 20191115
  Receipt Date: 20191115
  Transmission Date: 20200122
  Serious: Yes (Other)
  Sender: FDA-Public Use
  Company Number: US-GLAXOSMITHKLINE-US2019206706

PATIENT
  Sex: Female

DRUGS (1)
  1. ADVAIR DISKUS [Suspect]
     Active Substance: FLUTICASONE PROPIONATE\SALMETEROL XINAFOATE
     Indication: PRODUCT USED FOR UNKNOWN INDICATION
     Dosage: 1 PUFF(S), UNK
     Route: 055
     Dates: start: 2013

REACTIONS (6)
  - Renal failure [Not Recovered/Not Resolved]
  - Granulomatosis with polyangiitis [Recovering/Resolving]
  - Underdose [Unknown]
  - Product storage error [Unknown]
  - Expired product administered [Unknown]
  - Off label use [Unknown]
